FAERS Safety Report 8672570 (Version 3)
Quarter: 2012Q4

REPORT INFORMATION
  Report Type: 
  Country: US (occurrence: US)
  Receive Date: 20120719
  Receipt Date: 20120925
  Transmission Date: 20130627
  Serious: Yes (Other)
  Sender: FDA-Public Use
  Company Number: US-BRISTOL-MYERS SQUIBB COMPANY-16757387

PATIENT
  Age: 49 Year
  Sex: Female

DRUGS (2)
  1. KOMBIGLYZE XR [Suspect]
     Indication: TYPE 2 DIABETES MELLITUS
     Dosage: 1df= 2.5/1000mg
     Route: 048
     Dates: start: 20120608, end: 2012
  2. MICARDIS [Concomitant]
     Dosage: 1Df:80 Unit NOS

REACTIONS (1)
  - Palpitations [Recovered/Resolved]
